FAERS Safety Report 19020557 (Version 2)
Quarter: 2022Q2

REPORT INFORMATION
  Report Type: Other
  Country: US (occurrence: None)
  Receive Date: 20210317
  Receipt Date: 20220613
  Transmission Date: 20220721
  Serious: No
  Sender: FDA-Public Use
  Company Number: US-ROCHE-2791706

PATIENT
  Age: 39 Year
  Sex: Male
  Weight: 65.830 kg

DRUGS (1)
  1. OCREVUS [Suspect]
     Active Substance: OCRELIZUMAB
     Indication: Multiple sclerosis
     Dosage: PRESCRIBED 300 MG ON DAY 1 AND 15, THEN 600 MG ONCE IN 6 MONTHS.?ON 10/OCT/2018,22/APR/2019, 21/OCT/
     Route: 042
     Dates: start: 20180425

REACTIONS (3)
  - COVID-19 [Recovered/Resolved]
  - Sinusitis [Recovering/Resolving]
  - Cough [Not Recovered/Not Resolved]

NARRATIVE: CASE EVENT DATE: 20200501
